FAERS Safety Report 8101583-0 (Version None)
Quarter: 2012Q1

REPORT INFORMATION
  Report Type: 
  Country: None (occurrence: None)
  Receive Date: 20120129
  Receipt Date: 20110926
  Transmission Date: 20120608
  Serious: No
  Sender: FDA-Public Use
  Company Number: US-ABBOTT-11P-163-0858583-00

PATIENT
  Sex: Female
  Weight: 85.352 kg

DRUGS (8)
  1. HUMIRA [Suspect]
     Indication: PSORIASIS
     Dates: start: 20050101, end: 20060101
  2. METHOTREXATE [Concomitant]
     Indication: PSORIATIC ARTHROPATHY
  3. CITALOPRAM [Concomitant]
     Indication: PRODUCT USED FOR UNKNOWN INDICATION
  4. HUMIRA [Suspect]
     Indication: PSORIATIC ARTHROPATHY
  5. UNKNOWN MEDICATION [Concomitant]
     Indication: BLOOD PRESSURE
  6. METHOTREXATE [Concomitant]
     Indication: PSORIASIS
  7. METFORMIN HCL [Concomitant]
     Indication: DIABETES MELLITUS
  8. UNKNOWN MEDICATION [Concomitant]
     Indication: THYROID DISORDER

REACTIONS (1)
  - DRUG EFFECT DECREASED [None]
